FAERS Safety Report 18744863 (Version 2)
Quarter: 2021Q1

REPORT INFORMATION
  Report Type: Spontaneous
  Country: US (occurrence: US)
  Receive Date: 20210115
  Receipt Date: 20210122
  Transmission Date: 20210419
  Serious: No
  Sender: FDA-Public Use
  Company Number: US-AMGEN-USASP2021005890

PATIENT
  Age: 46 Year
  Sex: Male

DRUGS (7)
  1. OTEZLA [Suspect]
     Active Substance: APREMILAST
     Indication: PSORIASIS
     Dosage: 30 MILLIGRAM, BID
     Route: 048
     Dates: start: 20170728
  2. WARFARIN [Concomitant]
     Active Substance: WARFARIN
  3. LISINOPRIL. [Concomitant]
     Active Substance: LISINOPRIL
  4. VITAMIN D [COLECALCIFEROL] [Concomitant]
     Active Substance: CHOLECALCIFEROL
  5. ELIQUIS [Concomitant]
     Active Substance: APIXABAN
  6. ATORVASTATIN [Concomitant]
     Active Substance: ATORVASTATIN
  7. FENOFIBRATE. [Concomitant]
     Active Substance: FENOFIBRATE

REACTIONS (1)
  - COVID-19 [Recovered/Resolved]

NARRATIVE: CASE EVENT DATE: 202012
